FAERS Safety Report 7536634-5 (Version None)
Quarter: 2011Q2

REPORT INFORMATION
  Report Type: 
  Country: None (occurrence: None)
  Receive Date: 20110602
  Receipt Date: 20110531
  Transmission Date: 20111010
  Serious: Yes (Hospitalization)
  Sender: FDA-Public Use
  Company Number: 2011SP023099

PATIENT
  Age: 42 Year
  Sex: Female

DRUGS (6)
  1. CERAZETTE (DESOGESTREL /00754001/) [Suspect]
     Indication: OLIGOMENORRHOEA
     Dates: start: 20110201
  2. CERAZETTE (DESOGESTREL /00754001/) [Suspect]
     Indication: CONTRACEPTION
     Dates: start: 20110201
  3. GLEEVEC [Concomitant]
  4. LEVOTHYROXINE SODIUM [Suspect]
     Indication: POST PROCEDURAL HYPOTHYROIDISM
     Dosage: 175 MCG;QD; 200 MCG)QD;
     Dates: end: 20090101
  5. LEVOTHYROXINE SODIUM [Suspect]
     Indication: POST PROCEDURAL HYPOTHYROIDISM
     Dosage: 175 MCG;QD; 200 MCG)QD;
     Dates: start: 20090101, end: 20110501
  6. LEVOTHYROXINE SODIUM [Suspect]
     Indication: POST PROCEDURAL HYPOTHYROIDISM
     Dosage: 175 MCG;QD; 200 MCG)QD;
     Dates: start: 20110501

REACTIONS (3)
  - DRUG INTERACTION [None]
  - OLIGOMENORRHOEA [None]
  - THYROTOXIC CRISIS [None]
